FAERS Safety Report 10581871 (Version 2)
Quarter: 2014Q4

REPORT INFORMATION
  Report Type: Spontaneous
  Country: BR (occurrence: BR)
  Receive Date: 20141113
  Receipt Date: 20141212
  Transmission Date: 20150529
  Serious: Yes (Other)
  Sender: FDA-Public Use
  Company Number: BR-PFIZER INC-2014313603

PATIENT
  Sex: Female

DRUGS (3)
  1. CELEBRA [Suspect]
     Active Substance: CELECOXIB
     Dosage: UNK
     Route: 048
     Dates: start: 201411
  2. TEGRETARD [Concomitant]
     Indication: EPILEPSY
     Dosage: STRENGTH 200MG
  3. TEGRETARD [Concomitant]
     Indication: PETIT MAL EPILEPSY

REACTIONS (1)
  - Seizure [Unknown]
